FAERS Safety Report 15675823 (Version 1)
Quarter: 2018Q4

REPORT INFORMATION
  Report Type: Spontaneous
  Country: US (occurrence: US)
  Receive Date: 20181129
  Receipt Date: 20181129
  Transmission Date: 20190205
  Serious: Yes (Life-Threatening)
  Sender: FDA-Public Use
  Company Number: None

PATIENT
  Age: 74 Year
  Sex: Male
  Weight: 113.3 kg

DRUGS (6)
  1. ACTIVASE [Suspect]
     Active Substance: ALTEPLASE
     Indication: CEREBROVASCULAR ACCIDENT
     Dosage: ?          OTHER FREQUENCY:X1;?
     Route: 041
     Dates: start: 20181011, end: 20181011
  2. BENAZEPRIL 20MG PO EVERY DAY [Concomitant]
  3. SIMVASTATIN 40MG PO EVERY DAY [Concomitant]
  4. SPIRONOLACTONE 25 MG PO EVERY DAY [Concomitant]
  5. LEVOTHYROXINE 25 MCG PO EVERY DAY [Concomitant]
  6. ATENOLOL 25MG PO EVERY DAY [Concomitant]

REACTIONS (1)
  - Angioedema [None]

NARRATIVE: CASE EVENT DATE: 20181011
